FAERS Safety Report 9905636 (Version 1)
Quarter: 2014Q1

REPORT INFORMATION
  Report Type: Spontaneous
  Country: AU (occurrence: None)
  Receive Date: 20140211
  Receipt Date: 20140211
  Transmission Date: 20141002
  Serious: Yes (Hospitalization)
  Sender: FDA-Public Use
  Company Number: 2014000031

PATIENT
  Age: 65 Year
  Sex: Female

DRUGS (5)
  1. ACEON [Suspect]
     Indication: PRODUCT USED FOR UNKNOWN INDICATION
     Dosage: UNK, ORAL
     Route: 048
  2. ATORVASTATIN (ATORVASTATIN) [Concomitant]
  3. JANUMET (METFORMIN HYDROCHLORIDE, SITAGLIPTIN PHOSPHATE) [Concomitant]
  4. MEBENDAZOLE (MEBENDAZOLE) [Concomitant]
  5. TELMISARTAN (TELMISARTAN) [Concomitant]

REACTIONS (3)
  - Abdominal pain [None]
  - Vomiting [None]
  - Swelling face [None]
